FAERS Safety Report 8503003 (Version 2)
Quarter: 2012Q4

REPORT INFORMATION
  Report Type: 
  Country: US (occurrence: None)
  Receive Date: 20120403
  Receipt Date: 20120918
  Transmission Date: 20130627
  Serious: Yes (Hospitalization, Other)
  Sender: FDA-Public Use
  Company Number: 2012AP000817

PATIENT
  Age: 45 Year
  Sex: Male

DRUGS (2)
  1. GABAPENTIN [Suspect]
     Indication: PAIN
     Dates: start: 200911, end: 201008
  2. TRAMADOL HYDROCHLORIDE [Suspect]
     Indication: PAIN
     Dates: start: 200911, end: 201008

REACTIONS (11)
  - Abdominal pain [None]
  - Oesophageal haemorrhage [None]
  - Erosive oesophagitis [None]
  - Impaired gastric emptying [None]
  - Gastric dilatation [None]
  - Epigastric discomfort [None]
  - Wrong technique in drug usage process [None]
  - Post procedural complication [None]
  - Tibia fracture [None]
  - Fibula fracture [None]
  - Emotional distress [None]
